FAERS Safety Report 15313691 (Version 2)
Quarter: 2018Q4

REPORT INFORMATION
  Report Type: Report from Study
  Country: None (occurrence: US)
  Receive Date: 20180824
  Receipt Date: 20181009
  Transmission Date: 20190204
  Serious: Yes (Other)
  Sender: FDA-Public Use
  Company Number: US-ABBVIE-18K-163-2323833-00

PATIENT
  Age: 57 Year
  Sex: Male
  Weight: 65.83 kg

DRUGS (4)
  1. HUMIRA [Suspect]
     Active Substance: ADALIMUMAB
     Dosage: DAY 15
     Route: 058
     Dates: start: 20171115, end: 20171115
  2. HUMIRA [Suspect]
     Active Substance: ADALIMUMAB
     Indication: CROHN^S DISEASE
     Dosage: DAY 1
     Route: 058
     Dates: start: 20171101, end: 20171101
  3. HUMIRA [Suspect]
     Active Substance: ADALIMUMAB
     Route: 058
     Dates: start: 20180404
  4. HUMIRA [Suspect]
     Active Substance: ADALIMUMAB
     Dosage: DAY 29
     Route: 058
     Dates: start: 20171129, end: 201803

REACTIONS (14)
  - Decreased appetite [Recovered/Resolved]
  - Post procedural complication [Recovered/Resolved]
  - Therapeutic response shortened [Recovered/Resolved]
  - Arthralgia [Recovering/Resolving]
  - Haemorrhoids [Recovering/Resolving]
  - Dysuria [Unknown]
  - Injection site discomfort [Unknown]
  - Crohn^s disease [Recovered/Resolved]
  - Colitis ulcerative [Unknown]
  - Anaemia [Recovered/Resolved]
  - Frequent bowel movements [Unknown]
  - Urinary tract infection [Unknown]
  - Weight decreased [Recovered/Resolved]
  - Pouchitis [Unknown]

NARRATIVE: CASE EVENT DATE: 2018
